FAERS Safety Report 23910147 (Version 4)
Quarter: 2024Q3

REPORT INFORMATION
  Report Type: Spontaneous
  Country: US (occurrence: US)
  Receive Date: 20240528
  Receipt Date: 20240926
  Transmission Date: 20241017
  Serious: No
  Sender: NOVARTIS
  Company Number: US-002147023-NVSC2024US111858

PATIENT
  Age: 24 Year
  Sex: Female

DRUGS (1)
  1. COSENTYX [Suspect]
     Active Substance: SECUKINUMAB
     Indication: Product used for unknown indication
     Dosage: UNK
     Route: 065

REACTIONS (7)
  - Dyspepsia [Unknown]
  - Skin disorder [Unknown]
  - Hidradenitis [Unknown]
  - Feeling abnormal [Unknown]
  - Condition aggravated [Unknown]
  - Abdominal pain [Unknown]
  - Therapeutic product effect incomplete [Unknown]
